FAERS Safety Report 8936046 (Version 2)
Quarter: 2012Q4

REPORT INFORMATION
  Report Type: 
  Country: US (occurrence: US)
  Receive Date: 20121130
  Receipt Date: 20121221
  Transmission Date: 20130627
  Serious: No
  Sender: FDA-Public Use
  Company Number: US-PFIZER INC-2012299636

PATIENT
  Age: 68 Year
  Sex: Female

DRUGS (11)
  1. INLYTA [Suspect]
     Indication: METASTATIC RENAL CELL CARCINOMA
     Dosage: 5 mg
     Route: 048
     Dates: start: 20120909
  2. MIRALAX [Suspect]
     Dosage: UNK
     Dates: start: 201209
  3. COLACE [Concomitant]
     Dosage: UNK
  4. DILAUDID [Concomitant]
     Dosage: UNK
  5. KLOR-CON 10 [Concomitant]
     Dosage: UNK
  6. LASIX [Concomitant]
     Dosage: UNK
  7. MORPHINE SULFATE [Concomitant]
     Dosage: UNK
  8. MULTIVITAMINS [Concomitant]
     Dosage: UNK
  9. REGLAN [Concomitant]
     Dosage: UNK
  10. VITAMIN C [Concomitant]
     Dosage: UNK
  11. WARFARIN SODIUM [Concomitant]
     Dosage: UNK

REACTIONS (1)
  - Diarrhoea [Recovered/Resolved]
